FAERS Safety Report 21001024 (Version 1)
Quarter: 2022Q2

REPORT INFORMATION
  Report Type: Spontaneous
  Country: US (occurrence: US)
  Receive Date: 20220624
  Receipt Date: 20220624
  Transmission Date: 20220721
  Serious: Yes (Life-Threatening, Hospitalization, Other)
  Sender: FDA-Public Use
  Company Number: US-MLMSERVICE-20220609-3600368-2

PATIENT
  Age: 57 Year
  Sex: Male

DRUGS (2)
  1. DURAGESIC [Suspect]
     Active Substance: FENTANYL
     Indication: Product used for unknown indication
     Dosage: CHEWING
     Route: 048
  2. DURAGESIC [Suspect]
     Active Substance: FENTANYL
     Dosage: HEATING FOLLOWED BY VAPOR INHALATION
     Route: 055

REACTIONS (13)
  - Suicide attempt [Recovered/Resolved]
  - Drug dependence [Recovered/Resolved]
  - Drug abuse [Recovered/Resolved]
  - Shared psychotic disorder [Recovered/Resolved]
  - Lacrimation increased [Recovered/Resolved]
  - Prescription drug used without a prescription [Recovered/Resolved]
  - Intentional product use issue [Recovered/Resolved]
  - Drug withdrawal syndrome [Recovered/Resolved]
  - Respiratory symptom [Recovered/Resolved]
  - Tachycardia [Recovered/Resolved]
  - Hyperhidrosis [Recovered/Resolved]
  - Intentional product misuse [Recovered/Resolved]
  - Abdominal pain [Recovered/Resolved]
